FAERS Safety Report 16115373 (Version 4)
Quarter: 2019Q2

REPORT INFORMATION
  Report Type: Report from Study
  Country: US (occurrence: US)
  Receive Date: 20190325
  Receipt Date: 20190410
  Transmission Date: 20190711
  Serious: Yes (Other)
  Sender: FDA-Public Use
  Company Number: PHEH2019US012695

PATIENT
  Sex: Male

DRUGS (1)
  1. COSENTYX [Suspect]
     Active Substance: SECUKINUMAB
     Indication: PRODUCT USED FOR UNKNOWN INDICATION
     Route: 065

REACTIONS (7)
  - Skin haemorrhage [Unknown]
  - Skin exfoliation [Unknown]
  - Influenza [Unknown]
  - Arthritis [Unknown]
  - Cerebrovascular accident [Unknown]
  - Skin fissures [Unknown]
  - Malaise [Unknown]
